FAERS Safety Report 12161185 (Version 3)
Quarter: 2016Q1

REPORT INFORMATION
  Report Type: Spontaneous
  Country: DE (occurrence: DE)
  Receive Date: 20160308
  Receipt Date: 20160318
  Transmission Date: 20160526
  Serious: Yes (Hospitalization)
  Sender: FDA-Public Use
  Company Number: DE-PFIZER INC-2016143729

PATIENT
  Age: 13 Year
  Sex: Male
  Weight: 32 kg

DRUGS (1)
  1. AMIODARONE HCL [Suspect]
     Active Substance: AMIODARONE HYDROCHLORIDE
     Indication: ATRIAL FLUTTER
     Dosage: 6 MG/KG, DAILY
     Route: 065

REACTIONS (2)
  - Pigmentation disorder [Recovered/Resolved]
  - Pulmonary mass [Not Recovered/Not Resolved]
